FAERS Safety Report 8877134 (Version 1)
Quarter: 2012Q4

REPORT INFORMATION
  Report Type: 
  Country: US (occurrence: US)
  Receive Date: 20121029
  Receipt Date: 20121029
  Transmission Date: 20130627
  Serious: No
  Sender: FDA-Public Use
  Company Number: US-PFIZER INC-2012267470

PATIENT
  Age: 54 Year
  Sex: Female
  Weight: 73.47 kg

DRUGS (1)
  1. CELEBREX [Suspect]
     Indication: CERVICAL RADICULOPATHY
     Dosage: 200 mg, 1x/day
     Route: 048
     Dates: end: 20121022

REACTIONS (2)
  - Speech disorder [Recovering/Resolving]
  - Low density lipoprotein increased [Unknown]
